FAERS Safety Report 19853420 (Version 3)
Quarter: 2021Q4

REPORT INFORMATION
  Report Type: Spontaneous
  Country: US (occurrence: US)
  Receive Date: 20210919
  Receipt Date: 20211020
  Transmission Date: 20220303
  Serious: Yes (Other)
  Sender: FDA-Public Use
  Company Number: US-SA-SAC20210913001114

PATIENT
  Age: 24 Year
  Sex: Female

DRUGS (2)
  1. DUPIXENT [Suspect]
     Active Substance: DUPILUMAB
     Indication: Dermatitis atopic
     Dosage: 300 MG, QOW
     Route: 058
     Dates: start: 20210207
  2. DUPIXENT [Suspect]
     Active Substance: DUPILUMAB
     Indication: Dermatitis
     Dosage: 300 MG, QOW
     Route: 058
     Dates: start: 202102

REACTIONS (10)
  - Eye inflammation [Unknown]
  - Nasal congestion [Unknown]
  - Periorbital inflammation [Unknown]
  - Ocular hyperaemia [Unknown]
  - Eye discharge [Unknown]
  - Eye irritation [Unknown]
  - Conjunctivitis [Unknown]
  - Eye pruritus [Unknown]
  - Lacrimation increased [Unknown]
  - Product use in unapproved indication [Unknown]

NARRATIVE: CASE EVENT DATE: 20210101
